FAERS Safety Report 21057470 (Version 1)
Quarter: 2022Q3

REPORT INFORMATION
  Report Type: Spontaneous
  Country: US (occurrence: None)
  Receive Date: 20220708
  Receipt Date: 20220708
  Transmission Date: 20221027
  Serious: Yes (Disabling)
  Sender: FDA-Public Use
  Company Number: None

PATIENT
  Age: 52 Year
  Sex: Female
  Weight: 72 kg

DRUGS (2)
  1. HYDROCORTISONE [Suspect]
     Active Substance: HYDROCORTISONE
     Indication: Eczema
     Route: 061
     Dates: start: 19720701, end: 20020701
  2. MULTI [Concomitant]

REACTIONS (6)
  - Rash [None]
  - Rash [None]
  - Rash [None]
  - Pruritus [None]
  - Skin weeping [None]
  - Steroid withdrawal syndrome [None]

NARRATIVE: CASE EVENT DATE: 20180501
